FAERS Safety Report 5267144-6 (Version None)
Quarter: 2007Q1

REPORT INFORMATION
  Report Type: 
  Country: None (occurrence: None)
  Receive Date: 20070316
  Receipt Date: 20070305
  Transmission Date: 20070707
  Serious: Yes (Other)
  Sender: FDA-Public Use
  Company Number: PHBS2007SG04101

PATIENT
  Age: 36 Year
  Sex: Female

DRUGS (4)
  1. IMATINIB MESYLATE [Suspect]
     Indication: CHRONIC MYELOID LEUKAEMIA
     Dosage: 600 MG/D
     Route: 065
     Dates: start: 20010601
  2. IMATINIB MESYLATE [Suspect]
     Route: 065
  3. INTERFERON ALFA [Concomitant]
     Dosage: 3 MILLION UNITS 3 TIMES PER WEEK
     Route: 065
  4. INTERFERON ALFA [Concomitant]
     Dosage: 6 MILLION UNITES 5 TIMES PER WEEK
     Route: 065

REACTIONS (4)
  - BREECH PRESENTATION [None]
  - CAESAREAN SECTION [None]
  - DRUG EXPOSURE DURING PREGNANCY [None]
  - NORMAL NEWBORN [None]
